FAERS Safety Report 8087534-6 (Version None)
Quarter: 2012Q1

REPORT INFORMATION
  Report Type: 
  Country: None (occurrence: None)
  Receive Date: 20120128
  Receipt Date: 20110408
  Transmission Date: 20120608
  Serious: No
  Sender: FDA-Public Use
  Company Number: US-ABBOTT-11P-163-0717846-00

PATIENT
  Age: 47 Year
  Sex: Female

DRUGS (5)
  1. HUMIRA [Suspect]
     Indication: ANKYLOSING SPONDYLITIS
     Dates: start: 20110329
  2. AZATHIOPRINE [Concomitant]
     Indication: COLITIS ULCERATIVE
     Dosage: 50MG DAILY
  3. TOPROL-XL [Concomitant]
     Indication: CARDIAC DISORDER
  4. SINGULAIR [Concomitant]
     Indication: SEASONAL ALLERGY
     Dosage: 10MG DAILY
  5. VITAMIN D [Concomitant]
     Indication: MINERAL SUPPLEMENTATION
     Dosage: TWICE WEEKLY

REACTIONS (1)
  - BRONCHITIS [None]
